FAERS Safety Report 9719115 (Version 2)
Quarter: 2013Q4

REPORT INFORMATION
  Report Type: Report from Study
  Country: CA (occurrence: CA)
  Receive Date: 20131127
  Receipt Date: 20131220
  Transmission Date: 20140711
  Serious: Yes (Death, Hospitalization, Other)
  Sender: FDA-Public Use
  Company Number: CA-ABBVIE-13P-028-1174351-00

PATIENT
  Age: 58 Year
  Sex: Male

DRUGS (2)
  1. HUMIRA [Suspect]
     Indication: ANKYLOSING SPONDYLITIS
     Route: 058
     Dates: start: 20110627, end: 2013
  2. HUMIRA [Suspect]
     Route: 058
     Dates: start: 2013, end: 201310

REACTIONS (9)
  - Death [Fatal]
  - Fall [Recovered/Resolved]
  - Thoracic vertebral fracture [Unknown]
  - Extradural haematoma [Unknown]
  - Spinal cord injury [Unknown]
  - Pain [Unknown]
  - Musculoskeletal stiffness [Unknown]
  - Urinary tract infection [Recovered/Resolved]
  - Ankylosing spondylitis [Unknown]
